FAERS Safety Report 5915339-8 (Version None)
Quarter: 2008Q4

REPORT INFORMATION
  Report Type: 
  Country: None (occurrence: None)
  Receive Date: 20081010
  Receipt Date: 20081001
  Transmission Date: 20090506
  Serious: Yes (Hospitalization)
  Sender: FDA-Public Use
  Company Number: FR-SANOFI-SYNTHELABO-A02200802919

PATIENT
  Sex: Male

DRUGS (4)
  1. STILNOX [Suspect]
     Indication: DRUG USE FOR UNKNOWN INDICATION
     Dosage: UNK
     Route: 064
     Dates: end: 20080306
  2. SERESTA [Suspect]
     Indication: DRUG USE FOR UNKNOWN INDICATION
     Route: 064
     Dates: end: 20080306
  3. LARGACTIL [Suspect]
     Indication: DRUG USE FOR UNKNOWN INDICATION
     Dosage: 25 MG 5 TIMES A DAY
     Route: 064
     Dates: end: 20080306
  4. ZYPREXA [Suspect]
     Indication: DRUG USE FOR UNKNOWN INDICATION
     Route: 064
     Dates: end: 20080306

REACTIONS (4)
  - DRUG EXPOSURE DURING PREGNANCY [None]
  - FEEDING DISORDER [None]
  - HYPOTONIA NEONATAL [None]
  - MALAISE [None]
